FAERS Safety Report 5585605-7 (Version None)
Quarter: 2007Q4

REPORT INFORMATION
  Report Type: 
  Country: None (occurrence: None)
  Receive Date: 20071204
  Receipt Date: 20070102
  Transmission Date: 20080405
  Serious: Yes (Other)
  Sender: FDA-Public Use
  Company Number: D-07-0001

PATIENT
  Age: 54 Year
  Sex: Female
  Weight: 159 kg

DRUGS (7)
  1. JANTOVEN [Suspect]
     Indication: PULMONARY EMBOLISM
     Dosage: 2 MG, ONE DOSE, PO
     Route: 048
     Dates: start: 20061214
  2. JANTOVEN [Suspect]
     Indication: PULMONARY EMBOLISM
     Dosage: 5 MG, ONE DOSE, PO
     Route: 048
     Dates: start: 20061213
  3. JANTOVEN [Suspect]
     Indication: PULMONARY EMBOLISM
     Dosage: 10 MG, ONE DOSE, PO
     Route: 048
     Dates: start: 20061212
  4. JANTOVEN [Suspect]
     Indication: PULMONARY EMBOLISM
     Dosage: 7.5 MG, ONE DOSE, PO
     Route: 048
     Dates: start: 20061211
  5. TAXOL [Concomitant]
  6. DEXAMETHASONE TAB [Concomitant]
  7. BENADRYL [Concomitant]

REACTIONS (2)
  - GANGRENE [None]
  - SKIN NECROSIS [None]
